FAERS Safety Report 7541018-X (Version None)
Quarter: 2011Q2

REPORT INFORMATION
  Report Type: 
  Country: None (occurrence: None)
  Receive Date: 20110610
  Receipt Date: 20110530
  Transmission Date: 20111010
  Serious: Yes (Hospitalization)
  Sender: FDA-Public Use
  Company Number: AU-MYLANLABS-2011S1011047

PATIENT
  Age: 32 Year
  Sex: Female

DRUGS (2)
  1. FLUOXETINE HCL [Suspect]
     Indication: DEPRESSION
     Route: 048
     Dates: start: 20110201
  2. NORDETTE-28 [Concomitant]

REACTIONS (4)
  - TREMOR [None]
  - DYSKINESIA [None]
  - MOVEMENT DISORDER [None]
  - MUSCLE TWITCHING [None]
